FAERS Safety Report 7203039-6 (Version None)
Quarter: 2010Q4

REPORT INFORMATION
  Report Type: 
  Country: None (occurrence: None)
  Receive Date: 20101229
  Receipt Date: 20101216
  Transmission Date: 20110411
  Serious: Yes (Other)
  Sender: FDA-Public Use
  Company Number: US-CELGENEUS-163-20785-10122263

PATIENT
  Sex: Female

DRUGS (13)
  1. THALOMID [Suspect]
     Indication: MULTIPLE MYELOMA
     Route: 048
     Dates: start: 20080509, end: 20100101
  2. DEXAMETHASONE [Concomitant]
     Indication: MULTIPLE MYELOMA
     Route: 065
     Dates: start: 20080509
  3. MELPHALAN [Concomitant]
     Indication: MULTIPLE MYELOMA
     Route: 065
     Dates: start: 20080509
  4. PREDNISONE [Concomitant]
     Indication: MULTIPLE MYELOMA
     Route: 065
     Dates: start: 20080509
  5. DILTIAZEM [Concomitant]
     Route: 065
  6. FERROUS SULFATE [Concomitant]
     Route: 065
  7. COUMADIN [Concomitant]
     Route: 065
  8. LASIX [Concomitant]
     Dosage: 80 MG IN AM AND 40 MG IN PM
     Route: 065
  9. MIRALAX [Concomitant]
     Route: 065
  10. PRILOSEC [Concomitant]
     Route: 065
  11. TRAMADOL HCL [Concomitant]
     Dosage: 1-2
     Route: 065
  12. POTASSIUM CITRATE [Concomitant]
     Route: 065
  13. POTASSIUM CHLORIDE [Concomitant]
     Route: 065

REACTIONS (3)
  - COMPRESSION FRACTURE [None]
  - DISEASE PROGRESSION [None]
  - MULTIPLE MYELOMA [None]
